FAERS Safety Report 5953975-3 (Version None)
Quarter: 2008Q4

REPORT INFORMATION
  Report Type: 
  Country: None (occurrence: None)
  Receive Date: 20081114
  Receipt Date: 20081107
  Transmission Date: 20090506
  Serious: Yes (Life-Threatening, Other)
  Sender: FDA-Public Use
  Company Number: US-GENENTECH-269149

PATIENT
  Age: 56 Year
  Sex: Male

DRUGS (10)
  1. RITUXAN [Suspect]
     Indication: NON-HODGKIN'S LYMPHOMA
     Dosage: UNK
     Dates: start: 20040715
  2. RITUXAN [Suspect]
     Dosage: UNK
     Dates: start: 20050515
  3. RITUXAN [Suspect]
     Dosage: UNK
     Dates: start: 20060215
  4. RITUXAN [Suspect]
     Dosage: UNK
     Dates: start: 20060815
  5. RITUXAN [Suspect]
     Dosage: UNK
     Dates: start: 20070215
  6. CHLORAMBUCIL [Concomitant]
     Indication: NON-HODGKIN'S LYMPHOMA
     Dosage: UNK
     Dates: start: 20040315
  7. PREDNISONE TAB [Concomitant]
     Indication: NON-HODGKIN'S LYMPHOMA
     Dosage: UNK
     Dates: start: 20040315
  8. CYTOXAN [Concomitant]
     Indication: NON-HODGKIN'S LYMPHOMA
     Dosage: UNK
     Dates: start: 20040415
  9. VINCRISTINE [Concomitant]
     Indication: NON-HODGKIN'S LYMPHOMA
     Dosage: UNK
     Dates: start: 20040415
  10. FLUDARABINE PHOSPHATE [Concomitant]
     Indication: NON-HODGKIN'S LYMPHOMA
     Dosage: UNK
     Dates: start: 20050815

REACTIONS (1)
  - PROGRESSIVE MULTIFOCAL LEUKOENCEPHALOPATHY [None]
